FAERS Safety Report 7337955-1 (Version None)
Quarter: 2011Q1

REPORT INFORMATION
  Report Type: 
  Country: None (occurrence: None)
  Receive Date: 20110303
  Receipt Date: 20110303
  Transmission Date: 20110831
  Serious: Yes (Life-Threatening, Hospitalization)
  Sender: FDA-Public Use
  Company Number: None

PATIENT
  Age: 64 Year
  Sex: Male
  Weight: 97 kg

DRUGS (2)
  1. WARFARIN SODIUM [Suspect]
     Indication: ATRIAL FIBRILLATION
     Dates: start: 20070101, end: 20110224
  2. PREDNISONE [Suspect]
     Indication: HEPATITIS
     Dosage: 60 MG EVERY DAY PO
     Route: 048
     Dates: start: 20110201, end: 20110224

REACTIONS (5)
  - JAUNDICE [None]
  - GALLBLADDER DISORDER [None]
  - INTERNATIONAL NORMALISED RATIO INCREASED [None]
  - DRUG INTERACTION [None]
  - HEPATIC ENZYME INCREASED [None]
